FAERS Safety Report 25725014 (Version 1)
Quarter: 2025Q3

REPORT INFORMATION
  Report Type: Spontaneous
  Country: US (occurrence: US)
  Receive Date: 20250826
  Receipt Date: 20250826
  Transmission Date: 20251020
  Serious: No
  Sender: ALKEM
  Company Number: US-ALKEM LABORATORIES LIMITED-US-ALKEM-2024-18692

PATIENT
  Sex: Male

DRUGS (1)
  1. DEFERASIROX ORAL GRANULES [Suspect]
     Active Substance: DEFERASIROX
     Indication: Product used for unknown indication
     Route: 065
     Dates: start: 202009

REACTIONS (4)
  - Haemosiderosis [Unknown]
  - Serum ferritin increased [Unknown]
  - Liver iron concentration abnormal [Unknown]
  - Drug ineffective [Unknown]
